FAERS Safety Report 20803931 (Version 1)
Quarter: 2022Q2

REPORT INFORMATION
  Report Type: Spontaneous
  Country: LT (occurrence: LT)
  Receive Date: 20220509
  Receipt Date: 20220509
  Transmission Date: 20220720
  Serious: Yes (Other)
  Sender: FDA-Public Use
  Company Number: LT-009507513-2205LTU001770

PATIENT
  Age: 81 Year
  Sex: Female

DRUGS (1)
  1. PEMBROLIZUMAB [Suspect]
     Active Substance: PEMBROLIZUMAB
     Indication: Malignant melanoma
     Dates: start: 20180709, end: 20211109

REACTIONS (12)
  - Malignant neoplasm progression [Unknown]
  - Brain oedema [Unknown]
  - Radiotherapy [Unknown]
  - Cervix carcinoma [Unknown]
  - Bronchiectasis [Unknown]
  - Vascular encephalopathy [Unknown]
  - Pulmonary fibrosis [Unknown]
  - Peripheral artery thrombosis [Unknown]
  - Intracranial mass [Unknown]
  - Brain scan abnormal [Unknown]
  - Cyst [Unknown]
  - Ill-defined disorder [Unknown]

NARRATIVE: CASE EVENT DATE: 20190301
